FAERS Safety Report 25362944 (Version 1)
Quarter: 2025Q2

REPORT INFORMATION
  Report Type: Spontaneous
  Country: US (occurrence: US)
  Receive Date: 20250527
  Receipt Date: 20250527
  Transmission Date: 20250717
  Serious: No
  Sender: PFIZER
  Company Number: US-PFIZER INC-202500106897

PATIENT
  Age: 85 Year
  Sex: Male
  Weight: 90.72 kg

DRUGS (2)
  1. VYNDAQEL [Suspect]
     Active Substance: TAFAMIDIS MEGLUMINE
     Indication: Coronary artery disease
     Dosage: 80 MILLIGRAMS, ONCE A DAY
     Dates: start: 202505
  2. MELATONIN [Suspect]
     Active Substance: MELATONIN

REACTIONS (1)
  - Hypersomnia [Not Recovered/Not Resolved]
